FAERS Safety Report 11318312 (Version 3)
Quarter: 2015Q4

REPORT INFORMATION
  Report Type: Spontaneous
  Country: PT (occurrence: PT)
  Receive Date: 20150728
  Receipt Date: 20151007
  Transmission Date: 20160304
  Serious: Yes (Other)
  Sender: FDA-Public Use
  Company Number: PT-GILEAD-2015-0164226

PATIENT
  Age: 57 Year
  Sex: Female
  Weight: 56 kg

DRUGS (5)
  1. DARUNAVIR W/RITONAVIR [Concomitant]
     Active Substance: DARUNAVIR\RITONAVIR
  2. HARVONI [Suspect]
     Active Substance: LEDIPASVIR\SOFOSBUVIR
     Indication: CHRONIC HEPATITIS C
     Dosage: UNK
     Route: 048
     Dates: start: 20150511, end: 20150810
  3. RIBAVIRIN. [Concomitant]
     Active Substance: RIBAVIRIN
     Dosage: 600 MG, QD
     Route: 065
     Dates: start: 20150511
  4. RALTEGRAVIR. [Concomitant]
     Active Substance: RALTEGRAVIR
  5. ETRAVIRINE [Concomitant]
     Active Substance: ETRAVIRINE

REACTIONS (5)
  - Renal tubular disorder [Recovering/Resolving]
  - Glomerular filtration rate decreased [Recovering/Resolving]
  - Glycosuria [Recovering/Resolving]
  - Proteinuria [Recovering/Resolving]
  - Hypophosphataemia [Recovering/Resolving]
